FAERS Safety Report 8586186-6 (Version None)
Quarter: 2012Q3

REPORT INFORMATION
  Report Type: 
  Country: None (occurrence: None)
  Receive Date: 20120810
  Receipt Date: 20120801
  Transmission Date: 20120928
  Serious: Yes (Hospitalization)
  Sender: FDA-Public Use
  Company Number: FR-GLAXOSMITHKLINE-B0820160A

PATIENT
  Age: 87 Year
  Sex: Female
  Weight: 51.8 kg

DRUGS (11)
  1. CETORNAN [Suspect]
     Dosage: 1UNIT TWICE PER DAY
     Route: 048
  2. EFFEXOR [Suspect]
     Dosage: 1TAB PER DAY
     Route: 048
     Dates: start: 20120327
  3. ARIXTRA [Suspect]
     Indication: PRODUCT USED FOR UNKNOWN INDICATION
     Dosage: 2.5MG PER DAY
     Route: 065
     Dates: start: 20120301
  4. ACETAMINOPHEN [Concomitant]
     Dosage: 2CAP THREE TIMES PER DAY
     Route: 048
     Dates: end: 20120606
  5. ATARAX [Concomitant]
     Dosage: 1TAB PER DAY
     Route: 048
  6. VOGALENE [Suspect]
     Route: 048
     Dates: start: 20120301
  7. CORDARONE [Concomitant]
     Dosage: 1UNIT PER DAY
     Route: 048
     Dates: end: 20120516
  8. LANSOPRAZOLE [Suspect]
     Route: 048
     Dates: start: 20120421, end: 20120601
  9. OXYCONTIN [Concomitant]
     Dosage: 2UNIT PER DAY
     Route: 048
     Dates: end: 20120516
  10. RABEPRAZOLE SODIUM [Suspect]
     Route: 048
     Dates: start: 20120301, end: 20120420
  11. TRANSIPEG [Suspect]
     Dosage: 1UNIT PER DAY
     Route: 048
     Dates: start: 20120315

REACTIONS (4)
  - DERMATITIS [None]
  - TOXIC SKIN ERUPTION [None]
  - ECZEMA NUMMULAR [None]
  - ECZEMA [None]
